FAERS Safety Report 8605381-0 (Version None)
Quarter: 2012Q3

REPORT INFORMATION
  Report Type: 
  Country: None (occurrence: None)
  Receive Date: 20120820
  Receipt Date: 20120814
  Transmission Date: 20120928
  Serious: Yes (Hospitalization)
  Sender: FDA-Public Use
  Company Number: US-BAYER-2012-028551

PATIENT
  Age: 44 Year
  Sex: Female
  Weight: 63.946 kg

DRUGS (6)
  1. ONDANSETRON HYDROCHLORIDE [Concomitant]
     Dosage: 4 MG, QD
     Dates: start: 20120312
  2. COMPAZINE [Concomitant]
     Dosage: 10 MG, UNK
     Dates: start: 20120312
  3. NEXAVAR [Suspect]
     Indication: BREAST CANCER
     Dosage: DAILY DOSE 600 MG
     Route: 048
     Dates: start: 20120314, end: 20120320
  4. ADDITIONAL STUDY MEDICATION [Suspect]
     Indication: BREAST CANCER
     Dosage: UNK
     Route: 048
     Dates: start: 20120314, end: 20120321
  5. ALPRAZOLAM [Concomitant]
     Dosage: 0.5 MG, QD
     Dates: start: 20120216
  6. ACETAMINOPHEN AND OXYCODONE HCL [Concomitant]
     Dosage: 5 MG, QD

REACTIONS (5)
  - NEUROTOXICITY [None]
  - HEADACHE [None]
  - NAUSEA [None]
  - VOMITING [None]
  - CYTOTOXIC OEDEMA [None]
